FAERS Safety Report 23952818 (Version 3)
Quarter: 2024Q2

REPORT INFORMATION
  Report Type: Spontaneous
  Country: FR (occurrence: FR)
  Receive Date: 20240607
  Receipt Date: 20240624
  Transmission Date: 20240715
  Serious: Yes (Death, Other)
  Sender: FDA-Public Use
  Company Number: FR-BEIGENE-BGN-2024-008721

PATIENT

DRUGS (1)
  1. BRUKINSA [Suspect]
     Active Substance: ZANUBRUTINIB
     Indication: Marginal zone lymphoma
     Dosage: 2 DOSAGE FORM, BID
     Route: 048
     Dates: start: 20240410, end: 20240417

REACTIONS (6)
  - Death [Fatal]
  - Haemolysis [Unknown]
  - Thrombocytopenia [Unknown]
  - Cerebral haematoma [Unknown]
  - Hemiplegia [Unknown]
  - Lymphocytosis [Unknown]

NARRATIVE: CASE EVENT DATE: 20240417
